FAERS Safety Report 4979315-4 (Version None)
Quarter: 2006Q2

REPORT INFORMATION
  Report Type: 
  Country: None (occurrence: None)
  Receive Date: 20060421
  Receipt Date: 20051121
  Transmission Date: 20061013
  Serious: Yes (Hospitalization)
  Sender: FDA-Public Use
  Company Number: US-MERCK-0511USA03847

PATIENT
  Age: 58 Year
  Sex: Male
  Weight: 89 kg

DRUGS (6)
  1. VIOXX [Suspect]
     Indication: ARTHRITIS
     Route: 048
     Dates: start: 20010101, end: 20040930
  2. VIOXX [Suspect]
     Route: 048
     Dates: start: 20010101, end: 20040930
  3. VIOXX [Suspect]
     Indication: OSTEOARTHRITIS
     Route: 048
     Dates: start: 20010101, end: 20040930
  4. VIOXX [Suspect]
     Route: 048
     Dates: start: 20010101, end: 20040930
  5. ADVIL [Concomitant]
     Route: 065
  6. LOTREL [Concomitant]
     Route: 065

REACTIONS (16)
  - ACUTE MYOCARDIAL INFARCTION [None]
  - ATRIAL FIBRILLATION [None]
  - BACK PAIN [None]
  - CORONARY ARTERY DISEASE [None]
  - CORONARY ARTERY STENOSIS [None]
  - DEHYDRATION [None]
  - EROSIVE DUODENITIS [None]
  - GASTRITIS [None]
  - GASTROENTERITIS [None]
  - HERNIA [None]
  - HERNIA REPAIR [None]
  - HYPERLIPIDAEMIA [None]
  - HYPOTENSION [None]
  - KNEE ARTHROPLASTY [None]
  - OVERDOSE [None]
  - VENTRICULAR DYSFUNCTION [None]
